FAERS Safety Report 8964953 (Version 2)
Quarter: 2012Q4

REPORT INFORMATION
  Report Type: 
  Country: DE (occurrence: ES)
  Receive Date: 20121213
  Receipt Date: 20121220
  Transmission Date: 20130627
  Serious: Yes (Other)
  Sender: FDA-Public Use
  Company Number: ES-BRISTOL-MYERS SQUIBB COMPANY-17177387

PATIENT
  Age: 36 Year
  Sex: Female

DRUGS (6)
  1. METFORMIN HCL [Suspect]
     Indication: TYPE 2 DIABETES MELLITUS
  2. ATAZANAVIR [Suspect]
     Indication: HIV TEST
  3. RITONAVIR [Suspect]
     Indication: HIV TEST
  4. INSULIN GLARGINE [Suspect]
     Indication: TYPE 2 DIABETES MELLITUS
  5. FLUTICASONE [Suspect]
     Indication: ASTHMA
  6. SALMETEROL [Suspect]
     Indication: ASTHMA

REACTIONS (4)
  - Cushing^s syndrome [Recovered/Resolved]
  - Blood cortisol decreased [Recovered/Resolved]
  - Adrenal suppression [None]
  - Drug interaction [None]
